FAERS Safety Report 16388546 (Version 1)
Quarter: 2019Q2

REPORT INFORMATION
  Report Type: Spontaneous
  Country: BE (occurrence: BE)
  Receive Date: 20190604
  Receipt Date: 20190604
  Transmission Date: 20190711
  Serious: Yes (Other)
  Sender: FDA-Public Use
  Company Number: BE-AUROBINDO-AUR-APL-2019-030573

PATIENT

DRUGS (36)
  1. MOXIFLOXACIN. [Suspect]
     Active Substance: MOXIFLOXACIN
     Indication: LUNG INFECTION
  2. MEROPENEM. [Suspect]
     Active Substance: MEROPENEM
     Indication: HEPATIC CIRRHOSIS
  3. AZITHROMYCIN ANHYDROUS. [Suspect]
     Active Substance: AZITHROMYCIN ANHYDROUS
     Indication: CYSTIC FIBROSIS
  4. CEFOXITIN [Suspect]
     Active Substance: CEFOXITIN SODIUM
     Indication: BRONCHIECTASIS
  5. CEFOXITIN [Suspect]
     Active Substance: CEFOXITIN SODIUM
     Indication: LUNG INFECTION
  6. LINEZOLID. [Suspect]
     Active Substance: LINEZOLID
     Indication: RESPIRATORY FAILURE
  7. CEFOXITIN [Suspect]
     Active Substance: CEFOXITIN SODIUM
     Indication: CYSTIC FIBROSIS
  8. LINEZOLID. [Suspect]
     Active Substance: LINEZOLID
     Indication: LUNG INFECTION
  9. MOXIFLOXACIN. [Suspect]
     Active Substance: MOXIFLOXACIN
     Indication: CYSTIC FIBROSIS
  10. MEROPENEM. [Suspect]
     Active Substance: MEROPENEM
     Indication: RESPIRATORY FAILURE
  11. AZITHROMYCIN ANHYDROUS. [Suspect]
     Active Substance: AZITHROMYCIN ANHYDROUS
     Indication: HEPATIC CIRRHOSIS
  12. MOXIFLOXACIN. [Suspect]
     Active Substance: MOXIFLOXACIN
     Indication: HEPATIC CIRRHOSIS
  13. MEROPENEM. [Suspect]
     Active Substance: MEROPENEM
     Indication: MYCOBACTERIUM ABSCESSUS INFECTION
     Dosage: UNK
     Route: 042
  14. MEROPENEM. [Suspect]
     Active Substance: MEROPENEM
     Indication: CYSTIC FIBROSIS
  15. AMIKACIN. [Suspect]
     Active Substance: AMIKACIN
     Indication: MYCOBACTERIUM ABSCESSUS INFECTION
     Dosage: UNK
     Route: 042
  16. LINEZOLID. [Suspect]
     Active Substance: LINEZOLID
     Indication: CYSTIC FIBROSIS
  17. MOXIFLOXACIN. [Suspect]
     Active Substance: MOXIFLOXACIN
     Indication: BRONCHIECTASIS
  18. MOXIFLOXACIN. [Suspect]
     Active Substance: MOXIFLOXACIN
     Indication: RESPIRATORY FAILURE
  19. MEROPENEM. [Suspect]
     Active Substance: MEROPENEM
     Indication: LUNG INFECTION
  20. AZITHROMYCIN ANHYDROUS. [Suspect]
     Active Substance: AZITHROMYCIN ANHYDROUS
     Indication: RESPIRATORY FAILURE
  21. AZITHROMYCIN ANHYDROUS. [Suspect]
     Active Substance: AZITHROMYCIN ANHYDROUS
     Indication: BRONCHIECTASIS
  22. AZITHROMYCIN ANHYDROUS. [Suspect]
     Active Substance: AZITHROMYCIN ANHYDROUS
     Indication: LUNG INFECTION
  23. AMIKACIN. [Suspect]
     Active Substance: AMIKACIN
     Indication: HEPATIC CIRRHOSIS
  24. AMIKACIN. [Suspect]
     Active Substance: AMIKACIN
     Indication: BRONCHIECTASIS
  25. AMIKACIN. [Suspect]
     Active Substance: AMIKACIN
     Indication: LUNG INFECTION
  26. LINEZOLID. [Suspect]
     Active Substance: LINEZOLID
     Indication: MYCOBACTERIUM ABSCESSUS INFECTION
     Dosage: UNK
     Route: 048
  27. LINEZOLID. [Suspect]
     Active Substance: LINEZOLID
     Indication: HEPATIC CIRRHOSIS
  28. CEFOXITIN [Suspect]
     Active Substance: CEFOXITIN SODIUM
     Indication: MYCOBACTERIUM ABSCESSUS INFECTION
     Dosage: UNK
     Route: 042
  29. AMIKACIN. [Suspect]
     Active Substance: AMIKACIN
     Indication: CYSTIC FIBROSIS
  30. MOXIFLOXACIN. [Suspect]
     Active Substance: MOXIFLOXACIN
     Indication: MYCOBACTERIUM ABSCESSUS INFECTION
     Dosage: UNK
     Route: 048
  31. MEROPENEM. [Suspect]
     Active Substance: MEROPENEM
     Indication: BRONCHIECTASIS
  32. AZITHROMYCIN ANHYDROUS. [Suspect]
     Active Substance: AZITHROMYCIN ANHYDROUS
     Indication: MYCOBACTERIUM ABSCESSUS INFECTION
     Dosage: UNK
     Route: 048
  33. AMIKACIN. [Suspect]
     Active Substance: AMIKACIN
     Indication: RESPIRATORY FAILURE
  34. CEFOXITIN [Suspect]
     Active Substance: CEFOXITIN SODIUM
     Indication: HEPATIC CIRRHOSIS
  35. CEFOXITIN [Suspect]
     Active Substance: CEFOXITIN SODIUM
     Indication: RESPIRATORY FAILURE
  36. LINEZOLID. [Suspect]
     Active Substance: LINEZOLID
     Indication: BRONCHIECTASIS

REACTIONS (3)
  - Pyrexia [Unknown]
  - Deafness [Unknown]
  - Toxicity to various agents [Unknown]
